FAERS Safety Report 7448025-6 (Version None)
Quarter: 2011Q2

REPORT INFORMATION
  Report Type: 
  Country: None (occurrence: None)
  Receive Date: 20110429
  Receipt Date: 20100401
  Transmission Date: 20111010
  Serious: No
  Sender: FDA-Public Use
  Company Number: US-ASTRAZENECA-2010SE14426

PATIENT
  Age: 71 Year
  Sex: Male
  Weight: 87.1 kg

DRUGS (6)
  1. NEXIUM [Suspect]
     Route: 048
     Dates: start: 20080101
  2. DIOVAN [Concomitant]
  3. EYE DROPS [Concomitant]
  4. METOPROLOL SUCCINATE [Concomitant]
  5. NIACIN [Concomitant]
  6. FEXOFENIDINE [Concomitant]

REACTIONS (1)
  - VENTRICULAR TACHYCARDIA [None]
